FAERS Safety Report 12883409 (Version 1)
Quarter: 2016Q4

REPORT INFORMATION
  Report Type: Report from Study
  Country: None (occurrence: US)
  Receive Date: 20161025
  Receipt Date: 20161025
  Transmission Date: 20170207
  Serious: Yes (Other)
  Sender: FDA-Public Use
  Company Number: US-ABBVIE-16P-163-1762323-00

PATIENT
  Age: 34 Year
  Sex: Female

DRUGS (4)
  1. HERBAL SUPPLEMENTS [Concomitant]
     Indication: PHYTOTHERAPY
     Route: 048
  2. VALACYCLOVIR [Concomitant]
     Active Substance: VALACYCLOVIR HYDROCHLORIDE
     Indication: GENITAL HERPES
     Route: 048
  3. LUPRON DEPOT [Suspect]
     Active Substance: LEUPROLIDE ACETATE
     Indication: ENDOMETRIOSIS
     Route: 050
     Dates: start: 20161003
  4. LUPRON DEPOT [Suspect]
     Active Substance: LEUPROLIDE ACETATE
     Route: 050
     Dates: start: 201101

REACTIONS (11)
  - Depression [Recovered/Resolved]
  - Vulvovaginitis streptococcal [Recovered/Resolved]
  - Urinary tract infection [Recovered/Resolved]
  - Endometriosis [Not Recovered/Not Resolved]
  - Mood swings [Recovered/Resolved]
  - Pelvic pain [Not Recovered/Not Resolved]
  - Suicidal ideation [Recovered/Resolved]
  - Abdominal pain [Not Recovered/Not Resolved]
  - Ovarian cyst [Recovered/Resolved]
  - Fungal infection [Recovered/Resolved]
  - Bone pain [Recovered/Resolved]

NARRATIVE: CASE EVENT DATE: 2011
